FAERS Safety Report 7555536-1 (Version None)
Quarter: 2011Q2

REPORT INFORMATION
  Report Type: 
  Country: None (occurrence: None)
  Receive Date: 20110617
  Receipt Date: 20040517
  Transmission Date: 20111010
  Serious: Yes (Other)
  Sender: FDA-Public Use
  Company Number: PHHO2001BR10563

PATIENT
  Age: 60 Year
  Sex: Female

DRUGS (1)
  1. ESTRADERM [Suspect]
     Dosage: ONE PATCH TWICE WEEKLY
     Route: 062

REACTIONS (1)
  - BREAST MASS [None]
